FAERS Safety Report 9782835 (Version 1)
Quarter: 2013Q4

REPORT INFORMATION
  Report Type: Spontaneous
  Country: US (occurrence: US)
  Receive Date: 20131226
  Receipt Date: 20131226
  Transmission Date: 20140711
  Serious: No
  Sender: FDA-Public Use
  Company Number: US-ABBVIE-13P-163-1109057-00

PATIENT
  Age: 66 Year
  Sex: Male
  Weight: 111.23 kg

DRUGS (2)
  1. LUPRON DEPOT [Suspect]
     Indication: PROSTATE CANCER
     Route: 030
     Dates: start: 20130510
  2. CASODEX [Concomitant]
     Indication: PROSTATE CANCER

REACTIONS (1)
  - Dizziness [Recovered/Resolved]
